FAERS Safety Report 8766158 (Version 1)
Quarter: 2012Q4

REPORT INFORMATION
  Report Type: 
  Country: US (occurrence: US)
  Receive Date: 20120904
  Receipt Date: 20120904
  Transmission Date: 20130627
  Serious: Yes (Death)
  Sender: FDA-Public Use
  Company Number: US-ASTRAZENECA-2012SE65519

PATIENT
  Age: 208 Day
  Sex: Male

DRUGS (2)
  1. SYNAGIS [Suspect]
     Indication: NEONATAL RESPIRATORY DISTRESS SYNDROME
     Route: 030
     Dates: start: 20111108
  2. EPINEPHRINE [Concomitant]

REACTIONS (1)
  - Death [Fatal]
